FAERS Safety Report 5283304-2 (Version None)
Quarter: 2007Q2

REPORT INFORMATION
  Report Type: 
  Country: None (occurrence: None)
  Receive Date: 20070402
  Receipt Date: 20070328
  Transmission Date: 20071010
  Serious: Yes (Hospitalization)
  Sender: FDA-Public Use
  Company Number: 2007AP00917

PATIENT
  Age: 24833 Day
  Sex: Female

DRUGS (11)
  1. SEROQUEL [Suspect]
     Indication: DELIRIUM
     Route: 048
     Dates: start: 20060809
  2. DEPAS [Interacting]
     Indication: DELIRIUM
     Route: 048
     Dates: start: 20070201, end: 20070207
  3. RIVOTRIL [Interacting]
     Indication: DELIRIUM
     Route: 048
     Dates: start: 20060809
  4. CORTRIL [Concomitant]
     Indication: ADRENAL INSUFFICIENCY
     Route: 048
  5. SIGMART [Concomitant]
     Indication: ANGINA PECTORIS
     Route: 048
  6. MONILAC [Concomitant]
     Indication: HEPATIC CYST
     Route: 048
  7. LAC B [Concomitant]
     Indication: DIARRHOEA
     Route: 048
  8. ALLEGRA [Concomitant]
     Indication: RHINITIS ALLERGIC
     Route: 048
  9. PHOSBLOCK [Concomitant]
     Indication: RENAL FAILURE CHRONIC
     Route: 048
  10. PARIET [Concomitant]
     Indication: REFLUX OESOPHAGITIS
     Route: 048
  11. HOKUNALIN [Concomitant]
     Indication: ASTHMA
     Route: 048

REACTIONS (3)
  - COMA [None]
  - DRUG INTERACTION [None]
  - HAEMODIALYSIS [None]
